FAERS Safety Report 21032586 (Version 1)
Quarter: 2022Q3

REPORT INFORMATION
  Report Type: Report from Study
  Country: DO (occurrence: DO)
  Receive Date: 20220701
  Receipt Date: 20220701
  Transmission Date: 20221027
  Serious: Yes (Death, Other)
  Sender: FDA-Public Use
  Company Number: DO-JNJFOC-20220661473

PATIENT
  Age: 54 Year
  Sex: Male
  Weight: 73 kg

DRUGS (2)
  1. BORTEZOMIB [Suspect]
     Active Substance: BORTEZOMIB
     Indication: Plasma cell myeloma refractory
     Dosage: UNK
     Route: 065
  2. DARZALEX [Suspect]
     Active Substance: DARATUMUMAB
     Indication: Plasma cell myeloma refractory
     Dosage: 16 MILLIGRAM/KILOGRAM, MONTHLY
     Route: 042
     Dates: start: 20210806

REACTIONS (1)
  - Death [Fatal]

NARRATIVE: CASE EVENT DATE: 20220626
